FAERS Safety Report 7160378-5 (Version None)
Quarter: 2010Q4

REPORT INFORMATION
  Report Type: 
  Country: None (occurrence: None)
  Receive Date: 20101214
  Receipt Date: 20091209
  Transmission Date: 20110411
  Serious: No
  Sender: FDA-Public Use
  Company Number: US-AMGEN-KDL379317

PATIENT

DRUGS (9)
  1. ENBREL [Suspect]
     Indication: RHEUMATOID ARTHRITIS
     Dosage: 50 MG, UNK
  2. ALPRAZOLAM [Concomitant]
     Dosage: UNK UNK, UNK
  3. CALCIUM [Concomitant]
     Dosage: UNK UNK, UNK
  4. FOLIC ACID [Concomitant]
     Dosage: UNK UNK, UNK
  5. SUMATRIPTAN [Concomitant]
     Dosage: UNK UNK, UNK
  6. ACETAMINOPHEN AND OXYCODONE HCL [Concomitant]
     Dosage: UNK UNK, UNK
  7. PANTOPRAZOLE SODIUM [Concomitant]
     Dosage: UNK UNK, UNK
  8. LEVOTHYROXINE SODIUM [Concomitant]
     Dosage: UNK UNK, UNK
  9. BUPROPION [Concomitant]
     Dosage: UNK UNK, UNK

REACTIONS (1)
  - INJECTION SITE PAIN [None]
